FAERS Safety Report 4563959-8 (Version None)
Quarter: 2005Q1

REPORT INFORMATION
  Report Type: 
  Country: None (occurrence: None)
  Receive Date: 20050127
  Receipt Date: 20050112
  Transmission Date: 20050727
  Serious: Yes (Death)
  Sender: FDA-Public Use
  Company Number: 2005S1000155

PATIENT
  Age: 53 Year
  Sex: Female

DRUGS (3)
  1. CLOZAPINE [Suspect]
     Indication: SCHIZOPHRENIA
     Dosage: 25MG AM AND 75MG HS, ORAL
     Route: 048
  2. ATORVASTATIN [Concomitant]
  3. VALPROIC ACID [Concomitant]

REACTIONS (1)
  - MULTI-ORGAN FAILURE [None]
